FAERS Safety Report 11093338 (Version 1)
Quarter: 2015Q2

REPORT INFORMATION
  Report Type: Spontaneous
  Country: US (occurrence: None)
  Receive Date: 20150504
  Receipt Date: 20150504
  Transmission Date: 20150821
  Serious: Yes (Other)
  Sender: FDA-Public Use
  Company Number: 001901139A

PATIENT
  Age: 21 Year
  Sex: Female

DRUGS (5)
  1. PROACTIV PLUS SKIN PURIFYING MASK [Suspect]
     Active Substance: SULFUR
     Indication: ACNE
     Dosage: ONCE, DERMAL
     Dates: start: 20150304
  2. PROACTIV PLUS COMPLEXION PERFECTING HYDRATOR [Suspect]
     Active Substance: SALICYLIC ACID
     Indication: ACNE
     Dosage: ONCE, DERMAL
     Dates: start: 20150304
  3. PROACTIVPLUS SKIN SMOOTHING EXFOLIATOR [Suspect]
     Active Substance: BENZOYL PEROXIDE
     Indication: ACNE
     Dosage: ONCE, DERMAL
     Dates: start: 20150304
  4. PROACTIV PLUS EMERGENCY BLEMISH RELIEF [Suspect]
     Active Substance: BENZOYL PEROXIDE
     Indication: ACNE
     Dosage: ONCE, DERMAL
     Dates: start: 20150304
  5. PROACTIV PLUS PORE TARGETING TREATMENT [Suspect]
     Active Substance: BENZOYL PEROXIDE
     Indication: ACNE
     Dosage: ONCE, DERMAL
     Dates: start: 20150304

REACTIONS (3)
  - Swelling face [None]
  - Erythema [None]
  - Eye swelling [None]

NARRATIVE: CASE EVENT DATE: 20150305
